FAERS Safety Report 7543731-7 (Version None)
Quarter: 2011Q2

REPORT INFORMATION
  Report Type: 
  Country: None (occurrence: None)
  Receive Date: 20110613
  Receipt Date: 20040524
  Transmission Date: 20111010
  Serious: Yes (Disabling)
  Sender: FDA-Public Use
  Company Number: PHHO2004JP07666

PATIENT
  Sex: Female

DRUGS (7)
  1. JUVELA [Concomitant]
     Indication: PERIPHERAL VASCULAR DISORDER
     Dosage: UNK
  2. LOCHOLEST [Suspect]
     Indication: HYPERCHOLESTEROLAEMIA
     Dosage: 20 MG, QD
     Route: 048
     Dates: start: 20000621
  3. CALSLOT [Concomitant]
     Indication: HYPERTENSION
  4. BUFFERIN [Concomitant]
     Indication: ANGINA PECTORIS
     Dosage: UNK
     Dates: start: 20010112
  5. COMELIAN [Concomitant]
     Indication: ANGINA PECTORIS
  6. FAMOTIDINE [Concomitant]
     Indication: GASTRITIS
     Dosage: UNK
     Dates: start: 20000817
  7. ASPIRIN [Concomitant]
     Indication: MYOCARDIAL ISCHAEMIA
     Dosage: UNK

REACTIONS (2)
  - VIITH NERVE PARALYSIS [None]
  - NERVE DEGENERATION [None]
